FAERS Safety Report 5149775-7 (Version None)
Quarter: 2006Q4

REPORT INFORMATION
  Report Type: 
  Country: None (occurrence: None)
  Receive Date: 20061113
  Receipt Date: 20061030
  Transmission Date: 20070319
  Serious: Yes (Hospitalization, Other)
  Sender: FDA-Public Use
  Company Number: US-ELI_LILLY_AND_COMPANY-US200610005224

PATIENT
  Age: 79 Year
  Sex: Female

DRUGS (11)
  1. FORTEO [Suspect]
     Indication: OSTEOPOROSIS
     Dates: start: 20060403
  2. LEXAPRO                                 /USA/ [Concomitant]
     Indication: DEPRESSION
  3. PREDNISONE TAB [Concomitant]
     Indication: LIVER DISORDER
     Dosage: 2.5 MG, OTHER
  4. IMURAN [Concomitant]
     Indication: LIVER DISORDER
     Dosage: 25 MG, DAILY (1/D)
  5. AVAPRO [Concomitant]
     Indication: BLOOD PRESSURE
  6. CHLOROTHIAZIDE [Concomitant]
     Indication: BLOOD PRESSURE
  7. ZETIA [Concomitant]
     Indication: BLOOD CHOLESTEROL
  8. CALCIUM WITH VITAMIN D [Concomitant]
     Dosage: 600 MG, OTHER
  9. PRILOSEC [Concomitant]
     Dosage: 20 MG, DAILY (1/D)
  10. FENTANYL CITRATE [Concomitant]
     Indication: PAIN
  11. MEPERGAN [Concomitant]
     Indication: PAIN

REACTIONS (6)
  - BLOOD URINE PRESENT [None]
  - DYSURIA [None]
  - KIDNEY INFECTION [None]
  - MULTIPLE MYELOMA [None]
  - VERTEBROPLASTY [None]
  - VISUAL ACUITY REDUCED [None]
